FAERS Safety Report 8022257-0 (Version None)
Quarter: 2011Q4

REPORT INFORMATION
  Report Type: 
  Country: None (occurrence: None)
  Receive Date: 20111230
  Receipt Date: 20111220
  Transmission Date: 20120403
  Serious: Yes (Other)
  Sender: FDA-Public Use
  Company Number: IPC201111-003236

PATIENT
  Age: 59 Year
  Sex: Female

DRUGS (4)
  1. PROPRANOLOL HYDROCHLORIDE [Suspect]
     Indication: MITRAL VALVE PROLAPSE
     Dosage: 10 MG, FOUR TIMES A DAY
     Dates: start: 20080101
  2. PROPRANOLOL [Suspect]
     Indication: MITRAL VALVE PROLAPSE
     Dosage: 10 MG, FOUR TIMES A DAY
     Dates: start: 20080101
  3. PROPRANOLOL [Suspect]
     Dosage: 10 MG TABLETS
  4. CYCLOBENZAPRINE [Concomitant]

REACTIONS (6)
  - TINNITUS [None]
  - THROMBOSIS [None]
  - DRUG INEFFECTIVE [None]
  - PALPITATIONS [None]
  - ANGINA PECTORIS [None]
  - ARRHYTHMIA [None]
